FAERS Safety Report 4688850 (Version 3)
Quarter: 2013Q1

REPORT INFORMATION
  Report Type: Spontaneous
  Country: GB (occurrence: None)
  Receive Date: 19891207
  Receipt Date: 20121009
  Transmission Date: 20140127
  Serious: Yes (Hospitalization)
  Sender: FDA-Public Use
  Company Number: 2012-00888

PATIENT
  Age: 80 Year
  Sex: Male
  Weight: 70 kg

DRUGS (6)
  1. SIMVASTATIN [Suspect]
     Indication: BLOOD CHOLESTEROL INCREASED
     Dosage: 80 MG (40 MG, 2 IN 1 D), ORAL
     Route: 048
     Dates: start: 20120220, end: 20120513
  2. FUSIDIC ACID [Suspect]
     Indication: LOCALISED INFECTION
     Dosage: 500 MG (250 MG, 2 IN 1 D), ORAL
     Route: 048
     Dates: start: 20120413, end: 20120513
  3. CILOSTAZOL [Concomitant]
  4. FLUCLOXACILLIN [Concomitant]
  5. NICORANDIL [Concomitant]
  6. OMEPRAZOLE [Concomitant]

REACTIONS (5)
  - Blood creatine phosphokinase increased [None]
  - Pain in extremity [None]
  - Rhabdomyolysis [None]
  - Asthenia [None]
  - Drug interaction [None]
